APPROVED DRUG PRODUCT: ZEFAZONE
Active Ingredient: CEFMETAZOLE SODIUM
Strength: EQ 2GM BASE/VIAL **Federal Register determination that product was not discontinued or withdrawn for safety or effectiveness reasons**
Dosage Form/Route: INJECTABLE;INJECTION
Application: N050637 | Product #002
Applicant: PHARMACIA AND UPJOHN CO
Approved: Dec 11, 1989 | RLD: Yes | RS: No | Type: DISCN